FAERS Safety Report 7677269-3 (Version None)
Quarter: 2011Q3

REPORT INFORMATION
  Report Type: 
  Country: None (occurrence: None)
  Receive Date: 20110811
  Receipt Date: 20110808
  Transmission Date: 20111222
  Serious: Yes (Other)
  Sender: FDA-Public Use
  Company Number: RU-PFIZER INC-2011166620

PATIENT
  Age: 66 Year
  Sex: Female

DRUGS (3)
  1. XALATAN [Suspect]
     Indication: INTRAOCULAR LENS IMPLANT
  2. DORZOLAMIDE [Concomitant]
     Dosage: UNK
  3. XALATAN [Suspect]
     Indication: GLAUCOMA
     Dosage: 1 GTT, IN THE EVENING INTO BOTH EYES
     Route: 047
     Dates: start: 20110720, end: 20110720

REACTIONS (4)
  - EYE PAIN [None]
  - INFLAMMATION [None]
  - EYE INFLAMMATION [None]
  - CORNEAL DEPOSITS [None]
